FAERS Safety Report 20182475 (Version 2)
Quarter: 2022Q1

REPORT INFORMATION
  Report Type: Report from Study
  Country: US (occurrence: US)
  Receive Date: 20211214
  Receipt Date: 20220119
  Transmission Date: 20220423
  Serious: Yes (Death, Hospitalization, Other)
  Sender: FDA-Public Use
  Company Number: US-PFIZER INC-202101760833

PATIENT
  Age: 43 Year
  Sex: Female
  Weight: 90 kg

DRUGS (14)
  1. PALBOCICLIB [Suspect]
     Active Substance: PALBOCICLIB
     Dosage: 125 MG, QD FOR 21 DAYS (CYCLE: 28 DAYS)
     Route: 048
     Dates: start: 20160927, end: 20160930
  2. MORPHINE SULFATE [Suspect]
     Active Substance: MORPHINE SULFATE
     Dosage: UNK
     Route: 042
  3. POTASSIUM CHLORIDE [Suspect]
     Active Substance: POTASSIUM CHLORIDE
     Dosage: UNK
  4. HYDROCHLOROTHIAZIDE [Suspect]
     Active Substance: HYDROCHLOROTHIAZIDE
     Dosage: UNK
  5. PERCOCET [Suspect]
     Active Substance: ACETAMINOPHEN\OXYCODONE HYDROCHLORIDE
     Dosage: UNK
  6. ROBINUL [Suspect]
     Active Substance: GLYCOPYRROLATE
     Dosage: UNK
     Route: 042
  7. MORPHINE [Concomitant]
     Active Substance: MORPHINE
  8. LORAZEPAM [Concomitant]
     Active Substance: LORAZEPAM
  9. GABAPENTIN [Concomitant]
     Active Substance: GABAPENTIN
  10. SCOPOLAMINE [Concomitant]
     Active Substance: SCOPOLAMINE
  11. PROCHLORPERAZINE [Concomitant]
     Active Substance: PROCHLORPERAZINE
  12. PEPCID [Concomitant]
     Active Substance: FAMOTIDINE
  13. AMLODIPINE [Concomitant]
     Active Substance: AMLODIPINE BESYLATE
  14. ATROPINE [Concomitant]
     Active Substance: ATROPINE
     Route: 060

REACTIONS (13)
  - Hyponatraemia [Fatal]
  - Dehydration [Unknown]
  - Hyperkalaemia [Unknown]
  - Ascites [Unknown]
  - Lymphocyte count decreased [Unknown]
  - Acute respiratory distress syndrome [Fatal]
  - Hypoalbuminaemia [Unknown]
  - Constipation [Unknown]
  - Hypercalcaemia [Unknown]
  - Blood alkaline phosphatase increased [Unknown]
  - Alanine aminotransferase increased [Unknown]
  - Aspartate aminotransferase increased [Unknown]
  - Blood bilirubin increased [Unknown]

NARRATIVE: CASE EVENT DATE: 20160930
